FAERS Safety Report 10747173 (Version 1)
Quarter: 2015Q1

REPORT INFORMATION
  Report Type: Spontaneous
  Country: BR (occurrence: BR)
  Receive Date: 20150129
  Receipt Date: 20150129
  Transmission Date: 20150721
  Serious: Yes (Hospitalization)
  Sender: FDA-Public Use
  Company Number: BR-PFIZER INC-2014318081

PATIENT
  Age: 80 Year
  Sex: Female
  Weight: 65 kg

DRUGS (9)
  1. ANGIPRESS [Concomitant]
     Active Substance: ATENOLOL
     Indication: CARDIAC DISORDER
     Dosage: 1 DF, UNK
  2. APRAZ [Concomitant]
     Indication: RELAXATION THERAPY
     Dosage: ^1 TO 2^, DAILY
     Dates: start: 1989
  3. PRISTIQ EXTENDED RELEASE [Suspect]
     Active Substance: DESVENLAFAXINE SUCCINATE
     Indication: DEPRESSION
     Dosage: 50 MG, 1X/DAY
     Route: 048
  4. PRISTIQ EXTENDED RELEASE [Suspect]
     Active Substance: DESVENLAFAXINE SUCCINATE
     Indication: NERVOUSNESS
     Dosage: 25 MG (HALF TABLET OF 50MG), DAILY
     Route: 048
     Dates: start: 2013, end: 20141113
  5. MONOCORDIL [Concomitant]
     Active Substance: ISOSORBIDE MONONITRATE
     Indication: CARDIAC DISORDER
     Dosage: 1 DF, DAILY
  6. CRESTOR [Concomitant]
     Active Substance: ROSUVASTATIN CALCIUM
     Indication: BLOOD CHOLESTEROL ABNORMAL
     Dosage: 1 DF, DAILY
  7. ASPIRINA PREVENT [Concomitant]
     Active Substance: ASPIRIN
     Indication: ANTICOAGULANT THERAPY
     Dosage: 1 DF, DAILY
  8. NAPRIX A [Concomitant]
     Indication: BLOOD PRESSURE ABNORMAL
     Dosage: ^10 MG PLUS 5^ (1 TO 2 TABLETS), DAILY
     Dates: start: 2012
  9. VASTAREL [Concomitant]
     Active Substance: TRIMETAZIDINE DIHYDROCHLORIDE
     Indication: CARDIAC DISORDER
     Dosage: 1 DF, DAILY

REACTIONS (6)
  - Blood pressure inadequately controlled [Recovered/Resolved]
  - Depression [Recovered/Resolved]
  - Intentional product misuse [Unknown]
  - Nervousness [Recovered/Resolved]
  - Crying [Recovered/Resolved]
  - Malaise [Recovered/Resolved]
